FAERS Safety Report 6110011-6 (Version None)
Quarter: 2009Q1

REPORT INFORMATION
  Report Type: 
  Country: None (occurrence: None)
  Receive Date: 20090310
  Receipt Date: 20081120
  Transmission Date: 20090719
  Serious: No
  Sender: FDA-Public Use
  Company Number: A0757403A

PATIENT
  Age: 21 Year
  Sex: Female

DRUGS (2)
  1. NICORETTE [Suspect]
  2. ANTIDEPRESSANT [Concomitant]

REACTIONS (5)
  - DYSPNOEA [None]
  - GAIT DISTURBANCE [None]
  - HEART RATE INCREASED [None]
  - INTENTIONAL DRUG MISUSE [None]
  - NERVOUSNESS [None]
